FAERS Safety Report 6613378-5 (Version None)
Quarter: 2010Q1

REPORT INFORMATION
  Report Type: 
  Country: None (occurrence: None)
  Receive Date: 20100225
  Receipt Date: 20100211
  Transmission Date: 20100710
  Serious: Yes (Other)
  Sender: FDA-Public Use
  Company Number: JHP201000064

PATIENT

DRUGS (2)
  1. COLY-MYCIN M [Suspect]
     Indication: BACTERIAL INFECTION
     Dosage: INTRAVENOUS
     Route: 042
  2. COLY-MYCIN M [Suspect]
     Indication: DRUG RESISTANCE
     Dosage: INTRAVENOUS
     Route: 042

REACTIONS (2)
  - MENTAL STATUS CHANGES [None]
  - NEUROTOXICITY [None]
